FAERS Safety Report 5169919-0 (Version None)
Quarter: 2006Q4

REPORT INFORMATION
  Report Type: 
  Country: None (occurrence: None)
  Receive Date: 20061212
  Receipt Date: 20061127
  Transmission Date: 20070319
  Serious: Yes (Death)
  Sender: FDA-Public Use
  Company Number: US-ELI_LILLY_AND_COMPANY-US200611005528

PATIENT
  Age: 28 Year
  Sex: Male

DRUGS (2)
  1. STRATTERA [Suspect]
  2. RITALIN [Concomitant]

REACTIONS (1)
  - COMPLETED SUICIDE [None]
